FAERS Safety Report 4944807-0 (Version None)
Quarter: 2006Q1

REPORT INFORMATION
  Report Type: 
  Country: None (occurrence: None)
  Receive Date: 20060103
  Receipt Date: 20051123
  Transmission Date: 20060701
  Serious: Yes (Death)
  Sender: FDA-Public Use
  Company Number: 143822USA

PATIENT
  Age: 66 Year
  Sex: Male
  Weight: 66.2252 kg

DRUGS (20)
  1. AMIODARONE HCL [Suspect]
     Indication: ATRIAL FIBRILLATION
     Dates: start: 20051115, end: 20051116
  2. AMIODARONE HCL [Suspect]
     Indication: ATRIAL FLUTTER
     Dates: start: 20051115, end: 20051116
  3. ACETAMINOPHEN [Concomitant]
  4. CEFAZOLIN [Concomitant]
  5. CEFEPIME [Concomitant]
  6. D10W [Concomitant]
  7. DIGOXIN [Concomitant]
  8. DILTIAZEM [Concomitant]
  9. DOPAMINE [Concomitant]
  10. ENOXAPARIN SODIUM [Concomitant]
  11. FENTANYL [Concomitant]
  12. FLUCONAZOLE [Concomitant]
  13. FUROSEMIDE [Concomitant]
  14. HALDOL [Concomitant]
  15. INSULIN [Concomitant]
  16. LEVALBUTEROL HCL [Concomitant]
  17. LORAZEPAM [Concomitant]
  18. MIDAZOLAM [Concomitant]
  19. MORPHINE [Concomitant]
  20. PANTOPRAZOLE [Concomitant]

REACTIONS (2)
  - CARDIAC FAILURE [None]
  - INJECTION SITE REACTION [None]
